FAERS Safety Report 9342773 (Version 1)
Quarter: 2013Q2

REPORT INFORMATION
  Report Type: Report from Study
  Country: US (occurrence: US)
  Receive Date: 20130611
  Receipt Date: 20130611
  Transmission Date: 20140414
  Serious: No
  Sender: FDA-Public Use
  Company Number: US-UCBSA-087927

PATIENT
  Age: 50 Year
  Sex: Female
  Weight: 57.2 kg

DRUGS (8)
  1. LACOSAMIDE [Suspect]
     Indication: EPILEPSY
     Route: 048
     Dates: start: 20101228, end: 20130206
  2. IRON [Concomitant]
     Indication: GENERAL PHYSICAL HEALTH DETERIORATION
     Route: 048
     Dates: start: 20110314, end: 20110320
  3. IRON [Concomitant]
     Indication: GENERAL PHYSICAL HEALTH DETERIORATION
     Route: 048
     Dates: start: 20110320, end: 201105
  4. IRON [Concomitant]
     Indication: GENERAL PHYSICAL HEALTH DETERIORATION
     Route: 048
     Dates: start: 201209
  5. NYQUIL [Concomitant]
     Indication: UPPER RESPIRATORY TRACT INFECTION
     Dosage: 1 CAPSULE
     Route: 048
     Dates: start: 20120303, end: 20120307
  6. NYQUIL [Concomitant]
     Indication: NASOPHARYNGITIS
     Dosage: 1 CAPSULE
     Route: 048
     Dates: start: 20120303, end: 20120307
  7. NYQUIL [Concomitant]
     Indication: UPPER RESPIRATORY TRACT INFECTION
     Dosage: 1 CAPSULE
     Route: 048
     Dates: start: 20130116, end: 20130118
  8. NYQUIL [Concomitant]
     Indication: NASOPHARYNGITIS
     Dosage: 1 CAPSULE
     Route: 048
     Dates: start: 20130116, end: 20130118

REACTIONS (1)
  - Bradycardia [Unknown]
